FAERS Safety Report 8131970-6 (Version None)
Quarter: 2012Q1

REPORT INFORMATION
  Report Type: 
  Country: None (occurrence: None)
  Receive Date: 20120208
  Receipt Date: 20120125
  Transmission Date: 20120608
  Serious: Yes (Disabling, Other)
  Sender: FDA-Public Use
  Company Number: 2011MA002909

PATIENT
  Sex: Female

DRUGS (5)
  1. BENZONATATE [Concomitant]
  2. MORPHINE SULFATE [Concomitant]
  3. OMEPRAZOLE [Concomitant]
  4. METOCLOPRAMIDE [Suspect]
     Indication: GASTROINTESTINAL DISORDER
     Dosage: 10 MG;QD;PO
     Route: 048
     Dates: start: 20080419
  5. OXYCODONE HCL AND ACETAMINOPHEN [Concomitant]

REACTIONS (8)
  - TARDIVE DYSKINESIA [None]
  - ECONOMIC PROBLEM [None]
  - FAMILY STRESS [None]
  - ANXIETY [None]
  - EXTRAPYRAMIDAL DISORDER [None]
  - PAIN [None]
  - EXCESSIVE EYE BLINKING [None]
  - IMPAIRED WORK ABILITY [None]
